FAERS Safety Report 9235591 (Version 1)
Quarter: 2013Q2

REPORT INFORMATION
  Report Type: Report from Study
  Country: CA (occurrence: CA)
  Receive Date: 20130417
  Receipt Date: 20130417
  Transmission Date: 20140414
  Serious: Yes (Hospitalization)
  Sender: FDA-Public Use
  Company Number: CA-JNJFOC-20130405423

PATIENT
  Age: 59 Year
  Sex: Female

DRUGS (10)
  1. REMICADE [Suspect]
     Indication: CROHN^S DISEASE
     Route: 042
     Dates: start: 200906
  2. SYNTHROID [Concomitant]
     Route: 065
  3. CALCIUM AND VIT D [Concomitant]
     Route: 065
  4. ACLASTA [Concomitant]
     Route: 065
  5. LOSEC [Concomitant]
     Route: 065
  6. TETRACYCLINE [Concomitant]
     Route: 065
  7. SYMBICORT [Concomitant]
     Route: 065
  8. CITALOPRAM [Concomitant]
     Route: 065
  9. HCTZ [Concomitant]
     Route: 065
  10. ZOPICLONE [Concomitant]
     Route: 065

REACTIONS (1)
  - Gastrooesophageal reflux disease [Recovered/Resolved]
